FAERS Safety Report 6196400-2 (Version None)
Quarter: 2009Q2

REPORT INFORMATION
  Report Type: 
  Country: None (occurrence: None)
  Receive Date: 20090518
  Receipt Date: 20090518
  Transmission Date: 20091009
  Serious: Yes (Hospitalization)
  Sender: FDA-Public Use
  Company Number: None

PATIENT
  Sex: Male
  Weight: 55.6 kg

DRUGS (17)
  1. FLUOROURACIL [Suspect]
     Dosage: 4484 MG
  2. ERBITUX [Suspect]
     Dosage: 788 MG
  3. LEUCOVORIN CALCIUM [Suspect]
     Dosage: 632 MG
  4. ELOXATIN [Suspect]
     Dosage: 101 MG
  5. CELEXA [Concomitant]
  6. CLINDAGEL [Concomitant]
  7. COLACE [Concomitant]
  8. COMPAZINE [Concomitant]
  9. DECADRON [Concomitant]
  10. LOMOTIL [Concomitant]
  11. LOVENOX [Concomitant]
  12. MORPHINE [Concomitant]
  13. MULTI-VITAMINS [Concomitant]
  14. OMEPRAZOLE [Concomitant]
  15. OPIUM TINCTURE DEODORIZED [Concomitant]
  16. OXYCODONE HCL [Concomitant]
  17. RANITIDINE [Concomitant]

REACTIONS (8)
  - ASTHENIA [None]
  - CHILLS [None]
  - DEHYDRATION [None]
  - DIARRHOEA [None]
  - GASTROINTESTINAL HAEMORRHAGE [None]
  - HAEMATOCRIT DECREASED [None]
  - MELAENA [None]
  - TACHYCARDIA [None]
